FAERS Safety Report 22184106 (Version 2)
Quarter: 2023Q2

REPORT INFORMATION
  Report Type: Spontaneous
  Country: US (occurrence: US)
  Receive Date: 20230407
  Receipt Date: 20230418
  Transmission Date: 20230721
  Serious: No
  Sender: FDA-Public Use
  Company Number: US-JNJFOC-20230380585

PATIENT
  Age: 22 Year
  Sex: Female

DRUGS (8)
  1. TREMFYA [Suspect]
     Active Substance: GUSELKUMAB
     Indication: Psoriasis
     Route: 058
  2. TREMFYA [Suspect]
     Active Substance: GUSELKUMAB
     Indication: Hidradenitis
  3. YAZ [Concomitant]
     Active Substance: DROSPIRENONE\ETHINYL ESTRADIOL
  4. CICLOPIROX [Concomitant]
     Active Substance: CICLOPIROX
  5. FLUOCINONIDE [Concomitant]
     Active Substance: FLUOCINONIDE
  6. FOLIC ACID [Concomitant]
     Active Substance: FOLIC ACID
  7. GABAPENTIN [Concomitant]
     Active Substance: GABAPENTIN
  8. METHOTREXATE [Concomitant]
     Active Substance: METHOTREXATE

REACTIONS (3)
  - Product quality issue [Unknown]
  - Product dose omission issue [Unknown]
  - Off label use [Unknown]

NARRATIVE: CASE EVENT DATE: 20230331
